FAERS Safety Report 8556318-4 (Version None)
Quarter: 2012Q3

REPORT INFORMATION
  Report Type: 
  Country: None (occurrence: None)
  Receive Date: 20120801
  Receipt Date: 20120730
  Transmission Date: 20120928
  Serious: Yes (Other)
  Sender: FDA-Public Use
  Company Number: US-PFIZER INC-2012184757

PATIENT
  Sex: Female
  Weight: 61.224 kg

DRUGS (5)
  1. KLONOPIN [Concomitant]
     Indication: ANXIETY
     Dosage: UNK
  2. GEODON [Suspect]
     Dosage: 60 MG, 1X/DAY
     Route: 048
     Dates: start: 20120401
  3. GEODON [Suspect]
     Indication: DEPRESSION
     Dosage: 80 MG, 1X/DAY
     Route: 048
     Dates: start: 20080101
  4. ZYPREXA ZYDIS [Concomitant]
     Indication: SCHIZOPHRENIA
     Dosage: UNK
  5. GEODON [Suspect]
     Dosage: 80 MG, 1X/DAY
     Route: 048
     Dates: end: 20120401

REACTIONS (2)
  - MALAISE [None]
  - DEPRESSION [None]
